FAERS Safety Report 11639451 (Version 1)
Quarter: 2015Q4

REPORT INFORMATION
  Report Type: Spontaneous
  Country: CA (occurrence: CA)
  Receive Date: 20151019
  Receipt Date: 20151019
  Transmission Date: 20160304
  Serious: Yes (Other)
  Sender: FDA-Public Use
  Company Number: CA-ROCHE-1647470

PATIENT
  Age: 62 Year
  Sex: Female

DRUGS (2)
  1. TREANDA [Suspect]
     Active Substance: BENDAMUSTINE HYDROCHLORIDE
     Indication: B-CELL LYMPHOMA
     Dosage: THERAPY DURATION:  5 MONTHS,SINGLE-USE,VIAL. I.V (POWDER FOR SOLUTION INTRAVENOUS, INFUSION ONLY)
     Route: 042
  2. RITUXAN [Suspect]
     Active Substance: RITUXIMAB
     Indication: B-CELL LYMPHOMA
     Dosage: THERAPY DURATION:  5 MONTHS
     Route: 042

REACTIONS (1)
  - Lymphoma transformation [Not Recovered/Not Resolved]
